FAERS Safety Report 10255492 (Version 1)
Quarter: 2014Q2

REPORT INFORMATION
  Report Type: Spontaneous
  Country: JP (occurrence: JP)
  Receive Date: 20140624
  Receipt Date: 20140624
  Transmission Date: 20141212
  Serious: Yes (Other)
  Sender: FDA-Public Use
  Company Number: JP-MYLANLABS-2014S1014589

PATIENT
  Age: 78 Year
  Sex: Male

DRUGS (2)
  1. SUNITINIB [Suspect]
     Indication: RENAL CELL CARCINOMA
     Dosage: 37.5MG, AND THEN REINTRODUCED AT 25MG
     Route: 065
  2. SUNITINIB [Suspect]
     Indication: RENAL CELL CARCINOMA
     Dosage: 25MG
     Route: 065

REACTIONS (3)
  - Pneumatosis intestinalis [Recovered/Resolved]
  - Intestinal perforation [Recovered/Resolved]
  - Palmar-plantar erythrodysaesthesia syndrome [Unknown]
